FAERS Safety Report 14775093 (Version 1)
Quarter: 2018Q2

REPORT INFORMATION
  Report Type: Report from Study
  Country: None (occurrence: BR)
  Receive Date: 20180418
  Receipt Date: 20180418
  Transmission Date: 20180711
  Serious: Yes (Hospitalization, Other)
  Sender: FDA-Public Use
  Company Number: BR-ABBVIE-18K-020-2322787-00

PATIENT
  Age: 77 Year
  Sex: Female
  Weight: 37 kg

DRUGS (6)
  1. SIMVASTATIN. [Concomitant]
     Active Substance: SIMVASTATIN
     Indication: BLOOD CHOLESTEROL
  2. ARAVA [Concomitant]
     Active Substance: LEFLUNOMIDE
     Indication: ARTHRITIS
  3. CLOPIDOGREL BISULFATE. [Concomitant]
     Active Substance: CLOPIDOGREL BISULFATE
     Indication: ANTICOAGULANT THERAPY
  4. DIOVAN [Concomitant]
     Active Substance: VALSARTAN
     Indication: HYPERTENSION
  5. ECASIL [Concomitant]
     Active Substance: ASPIRIN
     Indication: ANTICOAGULANT THERAPY
  6. HUMIRA [Suspect]
     Active Substance: ADALIMUMAB
     Indication: RHEUMATOID ARTHRITIS
     Route: 058
     Dates: start: 20140630, end: 201803

REACTIONS (13)
  - Respiratory tract infection bacterial [Recovering/Resolving]
  - Feeding disorder [Recovering/Resolving]
  - Muscular weakness [Recovered/Resolved]
  - Gait inability [Recovered/Resolved]
  - Peripheral coldness [Recovered/Resolved]
  - Blood viscosity increased [Unknown]
  - Pain in extremity [Recovered/Resolved]
  - Blood cholesterol abnormal [Recovered/Resolved]
  - Pain [Unknown]
  - Venous occlusion [Recovered/Resolved]
  - Bursitis [Recovered/Resolved]
  - Angioplasty [Unknown]
  - Muscular weakness [Recovering/Resolving]

NARRATIVE: CASE EVENT DATE: 201709
